FAERS Safety Report 24030844 (Version 1)
Quarter: 2024Q2

REPORT INFORMATION
  Report Type: Spontaneous
  Country: NL (occurrence: NL)
  Receive Date: 20240628
  Receipt Date: 20240628
  Transmission Date: 20240715
  Serious: Yes (Life-Threatening, Hospitalization, Other)
  Sender: FDA-Public Use
  Company Number: None

PATIENT
  Age: 19 Year
  Sex: Female
  Weight: 78 kg

DRUGS (4)
  1. DESMOPRESSIN [Suspect]
     Active Substance: DESMOPRESSIN
     Indication: Enuresis
     Dosage: 4 MG PO
     Route: 048
     Dates: start: 20050920, end: 20050927
  2. ETHINYL ESTRADIOL\LEVONORGESTREL ACETATE [Concomitant]
     Active Substance: ETHINYL ESTRADIOL\LEVONORGESTREL ACETATE
     Indication: Oral contraception
     Dosage: UNK UNK
     Route: 065
  3. DESMOPRESSIN ACETATE [Suspect]
     Active Substance: DESMOPRESSIN ACETATE
     Indication: Enuresis
     Dosage: 2 MG PO/0.4 MG BEFORE BED WEEK 1/0.2 MG WEEK 2, TABLET 0.4MG
     Route: 048
     Dates: start: 20050928, end: 20051011
  4. PAROXETINE HYDROCHLORIDE [Concomitant]
     Active Substance: PAROXETINE HYDROCHLORIDE\PAROXETINE HYDROCHLORIDE ANHYDROUS
     Indication: Product used for unknown indication
     Dosage: 20 MG PO, TABLET FILM COVER
     Route: 048
     Dates: start: 200508

REACTIONS (6)
  - Urinary retention [Recovered/Resolved]
  - Malaise [Recovering/Resolving]
  - Thirst [Recovered/Resolved]
  - Pulmonary embolism [Recovered/Resolved]
  - Hyperhidrosis [Recovered/Resolved]
  - Flushing [Recovered/Resolved]

NARRATIVE: CASE EVENT DATE: 20050930
